FAERS Safety Report 10964806 (Version 1)
Quarter: 2015Q1

REPORT INFORMATION
  Report Type: Spontaneous
  Country: ES (occurrence: ES)
  Receive Date: 20150330
  Receipt Date: 20150330
  Transmission Date: 20150721
  Serious: Yes (Hospitalization)
  Sender: FDA-Public Use
  Company Number: ES-009507513-1503ESP011845

PATIENT
  Age: 74 Year
  Sex: Female

DRUGS (3)
  1. AMITRIPTYLINE HYDROCHLORIDE. [Interacting]
     Active Substance: AMITRIPTYLINE HYDROCHLORIDE
     Indication: HEADACHE
     Dosage: 25 MG, QD
     Route: 048
     Dates: start: 20110307, end: 20110308
  2. ZOLPIDEM TARTRATE. [Concomitant]
     Active Substance: ZOLPIDEM TARTRATE
     Indication: PRODUCT USED FOR UNKNOWN INDICATION
     Dosage: 10 MG, QD
     Route: 048
     Dates: start: 2011
  3. AMERIDE [Suspect]
     Active Substance: AMILORIDE HYDROCHLORIDE\HYDROCHLOROTHIAZIDE
     Indication: HYPERTENSION
     Dosage: 5/50 MG, QD
     Route: 048
     Dates: start: 2010, end: 20110308

REACTIONS (3)
  - Hyponatraemia [Recovered/Resolved]
  - Drug interaction [Recovered/Resolved]
  - Dizziness [Recovered/Resolved]

NARRATIVE: CASE EVENT DATE: 20110308
